FAERS Safety Report 15948972 (Version 2)
Quarter: 2019Q3

REPORT INFORMATION
  Report Type: Report from Study
  Country: None (occurrence: JP)
  Receive Date: 20190211
  Receipt Date: 20190907
  Transmission Date: 20191004
  Serious: Yes (Death)
  Sender: FDA-Public Use
  Company Number: JP-ABBVIE-19S-087-2656718-00

PATIENT
  Age: 61 Year
  Sex: Male

DRUGS (3)
  1. DUODOPA [Suspect]
     Active Substance: CARBIDOPA\LEVODOPA
     Indication: PARKINSON^S DISEASE
     Dosage: MD: 13 ML CD: 2.3 ML/HR ? 15 HRS
     Route: 050
     Dates: start: 20170417, end: 20190111
  2. ISTRADEFYLLINE [Concomitant]
     Active Substance: ISTRADEFYLLINE
     Indication: PARKINSON^S DISEASE
     Route: 048
     Dates: end: 20190111
  3. ISTRADEFYLLINE [Concomitant]
     Active Substance: ISTRADEFYLLINE
     Indication: PARKINSON^S DISEASE

REACTIONS (2)
  - Pneumonia aspiration [Fatal]
  - Dysphagia [Fatal]

NARRATIVE: CASE EVENT DATE: 20180319
